FAERS Safety Report 24172980 (Version 1)
Quarter: 2024Q3

REPORT INFORMATION
  Report Type: Spontaneous
  Country: US (occurrence: US)
  Receive Date: 20240805
  Receipt Date: 20240805
  Transmission Date: 20241017
  Serious: Yes (Life-Threatening, Hospitalization, Other)
  Sender: GLENMARK
  Company Number: US-GLENMARK PHARMACEUTICALS-2024GMK092680

PATIENT

DRUGS (2)
  1. LIDOCAINE [Suspect]
     Active Substance: LIDOCAINE
     Indication: Local anaesthesia
     Dosage: 200 MILLIGRAM (20 ML OF 10 MG/ML) (FORMULATION: INJECTION)
     Route: 065
  2. LIDOCAINE [Suspect]
     Active Substance: LIDOCAINE
     Dosage: 120 MILLIGRAM (6 ML OF 20 MG/ML)
     Route: 065

REACTIONS (6)
  - Local anaesthetic systemic toxicity [Recovered/Resolved]
  - Dysarthria [Recovered/Resolved]
  - Electrocardiogram PR prolongation [Recovered/Resolved]
  - Mental status changes [Recovered/Resolved]
  - Seizure like phenomena [Recovered/Resolved]
  - Hypoaesthesia oral [Recovered/Resolved]
